FAERS Safety Report 7309594-X (Version None)
Quarter: 2011Q1

REPORT INFORMATION
  Report Type: 
  Country: None (occurrence: None)
  Receive Date: 20110223
  Receipt Date: 20110211
  Transmission Date: 20110831
  Serious: Yes (Hospitalization)
  Sender: FDA-Public Use
  Company Number: US-BAYER-2011-014119

PATIENT
  Age: 40 Year
  Sex: Female

DRUGS (2)
  1. CIPRO [Suspect]
     Dosage: UNK
  2. ZANAFLEX [Interacting]
     Dosage: UNK

REACTIONS (7)
  - BALANCE DISORDER [None]
  - HEART RATE INCREASED [None]
  - SHOCK [None]
  - CONSCIOUSNESS FLUCTUATING [None]
  - GAIT DISTURBANCE [None]
  - BLOOD PRESSURE DECREASED [None]
  - SEPSIS [None]
